FAERS Safety Report 9520832 (Version 1)
Quarter: 2013Q3

REPORT INFORMATION
  Report Type: Spontaneous
  Country: TR (occurrence: None)
  Receive Date: 20130911
  Receipt Date: 20130911
  Transmission Date: 20140515
  Serious: Yes (Death, Other)
  Sender: FDA-Public Use
  Company Number: SYM-2013-10517

PATIENT
  Sex: 0

DRUGS (5)
  1. FLUOROURACIL [Suspect]
     Indication: ADENOCARCINOMA GASTRIC
     Route: 040
  2. CISPLATIN [Suspect]
     Indication: ADENOCARCINOMA GASTRIC
     Route: 040
  3. DOCETAXEL [Suspect]
     Indication: ADENOCARCINOMA GASTRIC
     Route: 042
  4. LEUCOVORIN [Suspect]
     Indication: ADENOCARCINOMA GASTRIC
     Route: 042
  5. GRANULOCYTE COLONY STIMULATING FACTOR (GRANULOCYTE COLONY STIMULATING FACTOR) [Concomitant]

REACTIONS (4)
  - Nausea [None]
  - Vomiting [None]
  - Hypovolaemia [None]
  - Myocardial infarction [None]
